FAERS Safety Report 23762933 (Version 2)
Quarter: 2025Q4

REPORT INFORMATION
  Report Type: Spontaneous
  Country: US (occurrence: US)
  Receive Date: 20240419
  Receipt Date: 20251014
  Transmission Date: 20260118
  Serious: No
  Sender: SANOFI AVENTIS
  Company Number: US-SA-SAC20240415001239

PATIENT
  Age: 8 Year
  Sex: Female
  Weight: 44.4 kg

DRUGS (2)
  1. DUPIXENT [Suspect]
     Active Substance: DUPILUMAB
     Indication: Dermatitis allergic
     Dosage: 200 MG, QOW
     Route: 058
     Dates: start: 20231218
  2. DUPIXENT [Suspect]
     Active Substance: DUPILUMAB
     Dosage: 200 MG, QW
     Route: 058

REACTIONS (4)
  - Growing pains [Unknown]
  - Pain in extremity [Unknown]
  - Incorrect dose administered [Unknown]
  - Therapeutic response decreased [Unknown]
